FAERS Safety Report 9301976 (Version 2)
Quarter: 2013Q2

REPORT INFORMATION
  Report Type: Report from Study
  Country: US (occurrence: US)
  Receive Date: 20130521
  Receipt Date: 20130612
  Transmission Date: 20140414
  Serious: Yes (Death)
  Sender: FDA-Public Use
  Company Number: US-US-EMD SERONO, INC.-7211852

PATIENT
  Sex: Female

DRUGS (1)
  1. REBIF [Suspect]
     Indication: PRODUCT USED FOR UNKNOWN INDICATION
     Route: 058
     Dates: start: 20060817, end: 201305

REACTIONS (4)
  - Bladder cancer [Fatal]
  - Metastases to kidney [Fatal]
  - Metastases to lung [Fatal]
  - Decubitus ulcer [Unknown]
